FAERS Safety Report 8824976 (Version 1)
Quarter: 2012Q4

REPORT INFORMATION
  Report Type: 
  Country: US (occurrence: US)
  Receive Date: 20121004
  Receipt Date: 20121004
  Transmission Date: 20130627
  Serious: No
  Sender: FDA-Public Use
  Company Number: US-PFIZER INC-2012244290

PATIENT
  Age: 61 Year
  Sex: Female
  Weight: 60.77 kg

DRUGS (3)
  1. LYRICA [Suspect]
     Indication: BALANCE DISORDER
     Dosage: 50 mg, 3x/day
     Route: 048
     Dates: start: 201209
  2. LYRICA [Suspect]
     Indication: BALANCE DISORDER
  3. TOPROL XL [Concomitant]
     Dosage: 50 mg

REACTIONS (4)
  - Vision blurred [Unknown]
  - Disturbance in attention [Unknown]
  - Dizziness [Unknown]
  - Off label use [Unknown]
